FAERS Safety Report 16359563 (Version 1)
Quarter: 2019Q2

REPORT INFORMATION
  Report Type: Spontaneous
  Country: US (occurrence: US)
  Receive Date: 20190528
  Receipt Date: 20190528
  Transmission Date: 20190711
  Serious: Yes (Life-Threatening)
  Sender: FDA-Public Use
  Company Number: US-ADAAP-201900092

PATIENT
  Age: 49 Year
  Sex: Female

DRUGS (1)
  1. LUTATHERA [Suspect]
     Active Substance: LUTETIUM OXODOTREOTIDE LU-177
     Indication: CARCINOID TUMOUR OF THE SMALL BOWEL
     Route: 042
     Dates: start: 20190222, end: 20190222

REACTIONS (2)
  - Gastrointestinal haemorrhage [Recovering/Resolving]
  - Gastroenteritis radiation [Recovering/Resolving]

NARRATIVE: CASE EVENT DATE: 20190418
